FAERS Safety Report 6397587-9 (Version None)
Quarter: 2009Q4

REPORT INFORMATION
  Report Type: 
  Country: None (occurrence: None)
  Receive Date: 20091012
  Receipt Date: 20091001
  Transmission Date: 20100525
  Serious: Yes (Hospitalization)
  Sender: FDA-Public Use
  Company Number: DE-GILEAD-2009-0024154

PATIENT
  Sex: Male
  Weight: 100 kg

DRUGS (3)
  1. ATRIPLA [Suspect]
     Indication: HIV INFECTION
     Route: 048
     Dates: start: 20090803, end: 20090903
  2. TAZOBAC [Concomitant]
     Indication: PNEUMONIA
     Route: 042
     Dates: start: 20090730, end: 20090805
  3. CLARITHROMYCIN [Concomitant]
     Indication: PNEUMONIA
     Dates: start: 20090730, end: 20090810

REACTIONS (1)
  - THROMBOCYTOPENIA [None]
